FAERS Safety Report 5447341-7 (Version None)
Quarter: 2007Q3

REPORT INFORMATION
  Report Type: 
  Country: None (occurrence: None)
  Receive Date: 20070905
  Receipt Date: 20070905
  Transmission Date: 20080115
  Serious: No
  Sender: FDA-Public Use
  Company Number: None

PATIENT
  Age: 60 Year
  Sex: Female
  Weight: 39.4629 kg

DRUGS (9)
  1. LEUKINE [Suspect]
     Indication: NEUTROPENIA
     Dosage: 400 MCG DAILY X 7-10 DAY SC
     Route: 058
     Dates: start: 20070814
  2. LEUKINE [Suspect]
     Indication: PROPHYLAXIS
     Dosage: 400 MCG DAILY X 7-10 DAY SC
     Route: 058
     Dates: start: 20070814
  3. NEXIUM [Concomitant]
  4. PAXIL [Concomitant]
  5. BRONCHODILATORS [Concomitant]
  6. XANAX [Concomitant]
  7. ZOCOR [Concomitant]
  8. LISINOPRIL [Concomitant]
  9. CLARITIN [Concomitant]

REACTIONS (5)
  - BLOOD PRESSURE SYSTOLIC INCREASED [None]
  - DYSPNOEA [None]
  - HEART RATE INCREASED [None]
  - NAUSEA [None]
  - OXYGEN SATURATION DECREASED [None]
